FAERS Safety Report 14671975 (Version 1)
Quarter: 2018Q1

REPORT INFORMATION
  Report Type: Spontaneous
  Country: AU (occurrence: AU)
  Receive Date: 20180323
  Receipt Date: 20180323
  Transmission Date: 20180509
  Serious: Yes (Hospitalization)
  Sender: FDA-Public Use
  Company Number: AU-BION-007048

PATIENT
  Age: 51 Year
  Sex: Female

DRUGS (6)
  1. SERTRALINE [Concomitant]
     Active Substance: SERTRALINE HYDROCHLORIDE
     Indication: BIPOLAR DISORDER
  2. VALPROIC ACID. [Suspect]
     Active Substance: VALPROIC ACID
     Indication: BIPOLAR DISORDER
  3. QUETIAPINE/QUETIAPINE FUMARATE [Concomitant]
     Indication: BIPOLAR DISORDER
  4. METFORMIN [Concomitant]
     Active Substance: METFORMIN HYDROCHLORIDE
     Indication: TYPE 2 DIABETES MELLITUS
  5. PROPRANOLOL [Concomitant]
     Active Substance: PROPRANOLOL HYDROCHLORIDE
     Indication: MIGRAINE
  6. SITAGLIPTIN/SITAGLIPTIN PHOSPHATE [Concomitant]
     Indication: TYPE 2 DIABETES MELLITUS

REACTIONS (3)
  - Hyperammonaemic encephalopathy [Recovering/Resolving]
  - Respiratory acidosis [Unknown]
  - Acute kidney injury [Recovering/Resolving]
